FAERS Safety Report 21946989 (Version 1)
Quarter: 2023Q1

REPORT INFORMATION
  Report Type: Spontaneous
  Country: PY (occurrence: PY)
  Receive Date: 20230202
  Receipt Date: 20230202
  Transmission Date: 20230417
  Serious: Yes (Hospitalization, Other)
  Sender: FDA-Public Use
  Company Number: PY-TAKEDA-2023TUS005123

PATIENT
  Age: 43 Year
  Sex: Male

DRUGS (2)
  1. ICLUSIG [Suspect]
     Active Substance: PONATINIB
     Indication: Chronic myeloid leukaemia
     Dosage: 45 MILLIGRAM
     Route: 065
     Dates: start: 20221223, end: 20230104
  2. ICLUSIG [Suspect]
     Active Substance: PONATINIB
     Dosage: UNK
     Route: 065
     Dates: start: 20230127

REACTIONS (13)
  - Haemoglobin decreased [Unknown]
  - Cytopenia [Unknown]
  - Aspergillus infection [Unknown]
  - Chronic myeloid leukaemia [Unknown]
  - Septal panniculitis [Unknown]
  - Pancytopenia [Unknown]
  - Infection [Unknown]
  - Pyrexia [Unknown]
  - Erythema nodosum [Unknown]
  - Papule [Unknown]
  - Myalgia [Unknown]
  - Cough [Unknown]
  - Arthralgia [Unknown]

NARRATIVE: CASE EVENT DATE: 20230101
